FAERS Safety Report 6887568-0 (Version None)
Quarter: 2010Q3

REPORT INFORMATION
  Report Type: 
  Country: None (occurrence: None)
  Receive Date: 20100730
  Receipt Date: 20100716
  Transmission Date: 20110219
  Serious: Yes (Death, Hospitalization, Other)
  Sender: FDA-Public Use
  Company Number: FR-ELI_LILLY_AND_COMPANY-FR201007003613

PATIENT
  Sex: Male

DRUGS (3)
  1. ALIMTA [Suspect]
     Indication: NON-SMALL CELL LUNG CANCER
     Dates: start: 20090730, end: 20090824
  2. ARIXTRA [Concomitant]
     Dosage: UNK, UNKNOWN
     Route: 065
     Dates: start: 20090829
  3. NEUPOGEN [Concomitant]
     Indication: NEUTROPENIA NEONATAL

REACTIONS (3)
  - BONE MARROW FAILURE [None]
  - MALIGNANT NEOPLASM PROGRESSION [None]
  - SEPTIC SHOCK [None]
